FAERS Safety Report 17370309 (Version 3)
Quarter: 2020Q1

REPORT INFORMATION
  Report Type: Spontaneous
  Country: NL (occurrence: CZ)
  Receive Date: 20200205
  Receipt Date: 20200326
  Transmission Date: 20200409
  Serious: Yes (Hospitalization, Other)
  Sender: FDA-Public Use
  Company Number: CZ-ASTELLAS-2020US004267

PATIENT
  Age: 26 Year
  Sex: Female
  Weight: 62 kg

DRUGS (25)
  1. PROGRAF [Suspect]
     Active Substance: TACROLIMUS
     Dosage: 4 MG, ONCE DAILY (MORNING DOSE)
     Route: 048
     Dates: start: 20170216, end: 201702
  2. PROGRAF [Suspect]
     Active Substance: TACROLIMUS
     Dosage: UNK UNK, TWICE DAILY
     Route: 048
     Dates: start: 20170310, end: 201703
  3. PROGRAF [Suspect]
     Active Substance: TACROLIMUS
     Dosage: UNK UNK, TWICE DAILY
     Route: 048
     Dates: start: 20170320, end: 2017
  4. PROGRAF [Suspect]
     Active Substance: TACROLIMUS
     Dosage: UNK UNK, TWICE DAILY
     Route: 048
     Dates: start: 20170505, end: 201705
  5. PROGRAF [Suspect]
     Active Substance: TACROLIMUS
     Dosage: UNK UNK, TWICE DAILY
     Route: 048
     Dates: start: 20170507, end: 201705
  6. PROGRAF [Suspect]
     Active Substance: TACROLIMUS
     Route: 048
     Dates: start: 20190510, end: 2019
  7. PROGRAF [Suspect]
     Active Substance: TACROLIMUS
     Indication: TRANSPLANT
     Dosage: UNK UNK, TWICE DAILY
     Route: 048
     Dates: start: 20170121, end: 201701
  8. PROGRAF [Suspect]
     Active Substance: TACROLIMUS
     Dosage: UNK UNK, TWICE DAILY
     Route: 048
     Dates: start: 20170129, end: 2017
  9. PROGRAF [Suspect]
     Active Substance: TACROLIMUS
     Dosage: UNK UNK, TWICE DAILY
     Route: 048
     Dates: start: 20170726, end: 2017
  10. PROGRAF [Suspect]
     Active Substance: TACROLIMUS
     Route: 048
     Dates: start: 20181110
  11. COTRIMOXAZOL [Concomitant]
     Active Substance: SULFAMETHOXAZOLE\TRIMETHOPRIM
     Indication: PRODUCT USED FOR UNKNOWN INDICATION
     Route: 065
     Dates: start: 20170121, end: 20170427
  12. PROGRAF [Suspect]
     Active Substance: TACROLIMUS
     Dosage: UNK UNK, TWICE DAILY
     Route: 048
     Dates: start: 20170203, end: 201702
  13. PROGRAF [Suspect]
     Active Substance: TACROLIMUS
     Route: 048
     Dates: start: 20190808, end: 2019
  14. PROGRAF [Suspect]
     Active Substance: TACROLIMUS
     Route: 048
     Dates: start: 20191007
  15. PROGRAF [Suspect]
     Active Substance: TACROLIMUS
     Dosage: UNK UNK, TWICE DAILY
     Route: 048
     Dates: start: 20170127, end: 201701
  16. PROGRAF [Suspect]
     Active Substance: TACROLIMUS
     Route: 048
     Dates: start: 20190701, end: 201907
  17. PROGRAF [Suspect]
     Active Substance: TACROLIMUS
     Route: 048
     Dates: start: 20190730, end: 2019
  18. PROGRAF [Suspect]
     Active Substance: TACROLIMUS
     Route: 048
     Dates: start: 20190917, end: 2019
  19. MYCOPHENOLATE MOFETIL. [Concomitant]
     Active Substance: MYCOPHENOLATE MOFETIL
     Indication: PRODUCT USED FOR UNKNOWN INDICATION
     Route: 065
     Dates: start: 20170121, end: 20170413
  20. PROGRAF [Suspect]
     Active Substance: TACROLIMUS
     Dosage: UNK UNK, TWICE DAILY
     Route: 048
     Dates: start: 20170227, end: 2017
  21. PROGRAF [Suspect]
     Active Substance: TACROLIMUS
     Dosage: UNK UNK, TWICE DAILY
     Route: 048
     Dates: start: 20170502, end: 201705
  22. PROGRAF [Suspect]
     Active Substance: TACROLIMUS
     Dosage: UNK UNK, TWICE DAILY
     Route: 048
     Dates: start: 20171211
  23. VALCYTE [Concomitant]
     Active Substance: VALGANCICLOVIR HYDROCHLORIDE
     Indication: PRODUCT USED FOR UNKNOWN INDICATION
     Route: 065
     Dates: start: 20170121, end: 20170427
  24. PROGRAF [Suspect]
     Active Substance: TACROLIMUS
     Dosage: UNK UNK, TWICE DAILY
     Route: 048
     Dates: start: 20170526, end: 2017
  25. PROGRAF [Suspect]
     Active Substance: TACROLIMUS
     Route: 048
     Dates: start: 20190502, end: 201905

REACTIONS (8)
  - Clostridium difficile colitis [Recovered/Resolved]
  - Appendicitis perforated [Recovered/Resolved]
  - Complicated appendicitis [Recovered/Resolved]
  - Transplant rejection [Recovered/Resolved]
  - Product use in unapproved indication [Unknown]
  - Peritonitis [Recovered/Resolved]
  - Immunosuppressant drug level increased [Recovered/Resolved]
  - Exposure during pregnancy [Unknown]

NARRATIVE: CASE EVENT DATE: 201702
